FAERS Safety Report 10803933 (Version 1)
Quarter: 2015Q1

REPORT INFORMATION
  Report Type: Report from Study
  Country: MX (occurrence: MX)
  Receive Date: 20150217
  Receipt Date: 20150217
  Transmission Date: 20150721
  Serious: Yes (Death, Other)
  Sender: FDA-Public Use
  Company Number: PHHY2014MX168228

PATIENT
  Age: 68 Year
  Sex: Male

DRUGS (2)
  1. ONBREZ [Suspect]
     Active Substance: INDACATEROL
     Dosage: 2 DF
     Route: 055
     Dates: end: 20150116
  2. ONBREZ [Suspect]
     Active Substance: INDACATEROL
     Indication: LUNG DISORDER
     Dosage: 1 DF QD
     Route: 055
     Dates: start: 201409

REACTIONS (12)
  - Respiratory arrest [Unknown]
  - Cough [Unknown]
  - Product use issue [Not Recovered/Not Resolved]
  - Alveolar lung disease [Fatal]
  - Pulmonary oedema [Fatal]
  - Dyspnoea [Unknown]
  - Pyrexia [Unknown]
  - Cardiac arrest [Fatal]
  - Hyperhidrosis [Unknown]
  - Malaise [Recovering/Resolving]
  - Infection [Fatal]
  - Lung infection [Unknown]

NARRATIVE: CASE EVENT DATE: 201409
